FAERS Safety Report 6139410-3 (Version None)
Quarter: 2009Q2

REPORT INFORMATION
  Report Type: 
  Country: None (occurrence: None)
  Receive Date: 20090401
  Receipt Date: 20090320
  Transmission Date: 20091009
  Serious: Yes (Other)
  Sender: FDA-Public Use
  Company Number: IE-ROCHE-619562

PATIENT
  Age: 17 Year
  Sex: Male

DRUGS (1)
  1. ROACCUTANE [Suspect]
     Indication: ACNE
     Route: 048
     Dates: start: 20081001, end: 20090212

REACTIONS (3)
  - AFFECTIVE DISORDER [None]
  - SLEEP DISORDER [None]
  - SUICIDAL IDEATION [None]
